FAERS Safety Report 6974249-8 (Version None)
Quarter: 2010Q3

REPORT INFORMATION
  Report Type: 
  Country: None (occurrence: None)
  Receive Date: 20100909
  Receipt Date: 20100902
  Transmission Date: 20110219
  Serious: Yes (Other)
  Sender: FDA-Public Use
  Company Number: AU-VALEANT-2010VX001449

PATIENT
  Age: 52 Year
  Sex: Female
  Weight: 63 kg

DRUGS (2)
  1. EFUDIX [Suspect]
     Indication: SKIN LESION
     Route: 061
     Dates: start: 20100825, end: 20100825
  2. EVENING PRIMROSE OIL [Concomitant]
     Route: 065
     Dates: start: 20080101

REACTIONS (2)
  - DRUG EFFECT DECREASED [None]
  - DYSPNOEA [None]
